FAERS Safety Report 6815635-6 (Version None)
Quarter: 2010Q3

REPORT INFORMATION
  Report Type: 
  Country: None (occurrence: None)
  Receive Date: 20100702
  Receipt Date: 20100628
  Transmission Date: 20110219
  Serious: Yes (Death)
  Sender: FDA-Public Use
  Company Number: US-GILEAD-2010-0029284

PATIENT
  Sex: Male
  Weight: 106.69 kg

DRUGS (17)
  1. LETAIRIS [Suspect]
     Indication: PULMONARY ARTERIAL HYPERTENSION
     Route: 048
     Dates: start: 20080410, end: 20090101
  2. CHILDRENS ASPIRIN [Concomitant]
  3. LISINOPRIL [Concomitant]
  4. ATARAX [Concomitant]
  5. ANDROGEL [Concomitant]
  6. FENTANYL [Concomitant]
  7. PRAVACHOL [Concomitant]
  8. PRILOSEC [Concomitant]
  9. PREDNISONE [Concomitant]
  10. CELLCEPT [Concomitant]
  11. PROGRAF [Concomitant]
  12. BACTRIM DS [Concomitant]
  13. CLOTRIMAZOLE [Concomitant]
  14. ZITHROMAX [Concomitant]
  15. FOSAMAX [Concomitant]
  16. CALCIUM CARBONATE [Concomitant]
  17. MULTI-VITAMIN [Concomitant]

REACTIONS (1)
  - LUNG TRANSPLANT REJECTION [None]
